FAERS Safety Report 8462140-X (Version None)
Quarter: 2012Q2

REPORT INFORMATION
  Report Type: 
  Country: None (occurrence: None)
  Receive Date: 20120625
  Receipt Date: 20120618
  Transmission Date: 20120825
  Serious: Yes (Other)
  Sender: FDA-Public Use
  Company Number: JP-JNJFOC-20120610762

PATIENT

DRUGS (1)
  1. ITRACONAZOLE [Suspect]
     Indication: FUNGAL SKIN INFECTION
     Route: 048

REACTIONS (1)
  - BLOOD GLUCOSE DECREASED [None]
